FAERS Safety Report 15778668 (Version 1)
Quarter: 2018Q4

REPORT INFORMATION
  Report Type: Spontaneous
  Country: CN (occurrence: CN)
  Receive Date: 20181231
  Receipt Date: 20181231
  Transmission Date: 20190205
  Serious: Yes (Other)
  Sender: FDA-Public Use
  Company Number: CN-ROCHE-2237549

PATIENT
  Age: 50 Year
  Sex: Female
  Weight: 60 kg

DRUGS (2)
  1. PACLITAXEL. [Suspect]
     Active Substance: PACLITAXEL
     Indication: BREAST CANCER
     Dosage: LEFT BREAST CANCER POSTOPERATIVE CHEST WALL, STERNUM, LEFT RIB MULTIPLE METASTASIS
     Route: 041
     Dates: start: 20180829, end: 20180829
  2. HERCEPTIN [Suspect]
     Active Substance: TRASTUZUMAB
     Indication: BREAST CANCER
     Dosage: LEFT BREAST CANCER POSTOPERATIVE CHEST WALL, STERNUM, LEFT RIB MULTIPLE METASTASIS
     Route: 041
     Dates: start: 20180829, end: 20180831

REACTIONS (1)
  - Bone marrow failure [Recovering/Resolving]

NARRATIVE: CASE EVENT DATE: 20180903
